FAERS Safety Report 7113528-0 (Version None)
Quarter: 2010Q4

REPORT INFORMATION
  Report Type: 
  Country: None (occurrence: None)
  Receive Date: 20101119
  Receipt Date: 20101118
  Transmission Date: 20110411
  Serious: No
  Sender: FDA-Public Use
  Company Number: US-PFIZER INC-2010152236

PATIENT
  Sex: Male
  Weight: 74.83 kg

DRUGS (4)
  1. GEODON [Suspect]
     Indication: BIPOLAR DISORDER
     Dosage: 80 MG, 2X/DAY
     Dates: start: 20100101
  2. EFFEXOR [Suspect]
     Indication: DEPRESSION
     Dosage: 37.5 MG, 1X/DAY
     Route: 048
     Dates: end: 20101101
  3. AMBIEN [Suspect]
     Indication: INSOMNIA
     Dosage: UNK
     Route: 048
  4. WELLBUTRIN [Concomitant]
     Indication: DEPRESSION
     Dosage: 150 MG, 2X/DAY
     Route: 048
     Dates: start: 20101101

REACTIONS (3)
  - DECREASED APPETITE [None]
  - DRUG INEFFECTIVE [None]
  - INSOMNIA [None]
